FAERS Safety Report 23961954 (Version 1)
Quarter: 2024Q2

REPORT INFORMATION
  Report Type: Spontaneous
  Country: US (occurrence: US)
  Receive Date: 20240611
  Receipt Date: 20240611
  Transmission Date: 20240716
  Serious: No
  Sender: FDA-Public Use
  Company Number: US-RIGEL Pharmaceuticals, INC-2023FOS000428

PATIENT
  Sex: Female
  Weight: 86.168 kg

DRUGS (13)
  1. TAVALISSE [Suspect]
     Active Substance: FOSTAMATINIB
     Indication: Immune thrombocytopenia
     Dosage: 100 MG, BID
     Route: 048
     Dates: start: 20230324, end: 2023
  2. TAVALISSE [Suspect]
     Active Substance: FOSTAMATINIB
     Dosage: 150 MG, BID
     Route: 048
     Dates: start: 20230420, end: 2023
  3. PREDNISONE [Concomitant]
     Active Substance: PREDNISONE
     Indication: Immune thrombocytopenia
     Dosage: 10 MG, QD
     Route: 065
     Dates: start: 202211
  4. NITROGLYCERIN [Concomitant]
     Active Substance: NITROGLYCERIN
     Indication: Product used for unknown indication
     Dosage: 0.4 MG, PRN
     Route: 065
  5. NEBIVOLOL [Concomitant]
     Active Substance: NEBIVOLOL
     Indication: Product used for unknown indication
     Dosage: 2.5 MG, QD
     Route: 065
  6. ARMOUR THYROID [Concomitant]
     Active Substance: THYROID, PORCINE
     Indication: Product used for unknown indication
     Dosage: 90 MG, QD
     Route: 065
  7. ISOSORBIDE MONONITRATE [Concomitant]
     Active Substance: ISOSORBIDE MONONITRATE
     Indication: Product used for unknown indication
     Dosage: 30 MG, QD (EXTENDED RELEASE)
     Route: 065
  8. SERTRALINE [Concomitant]
     Active Substance: SERTRALINE HYDROCHLORIDE
     Indication: Product used for unknown indication
     Dosage: 25 MG, QD
     Route: 065
  9. PRILOSEC [Concomitant]
     Active Substance: OMEPRAZOLE MAGNESIUM
     Indication: Product used for unknown indication
     Dosage: 20 MG, QD
     Route: 065
  10. ZOFRAN [Concomitant]
     Active Substance: ONDANSETRON HYDROCHLORIDE
     Indication: Product used for unknown indication
     Dosage: 10 MG, QD
     Route: 065
  11. BERBERINE COMPLEX [Concomitant]
     Indication: Product used for unknown indication
     Dosage: UNK
     Route: 065
  12. VITAMINS NOS [Concomitant]
     Active Substance: VITAMINS
     Indication: Product used for unknown indication
     Dosage: UNK
     Route: 065
  13. VITAMIN D3 [Concomitant]
     Active Substance: CHOLECALCIFEROL
     Indication: Product used for unknown indication
     Dosage: UNK
     Route: 065

REACTIONS (6)
  - Arthralgia [Unknown]
  - Pain in extremity [Unknown]
  - Joint swelling [Unknown]
  - Chest pain [Unknown]
  - Abdominal pain [Unknown]
  - Abdominal discomfort [Unknown]

NARRATIVE: CASE EVENT DATE: 20230101
